FAERS Safety Report 4414891-1 (Version None)
Quarter: 2004Q3

REPORT INFORMATION
  Report Type: 
  Country: None (occurrence: None)
  Receive Date: 20040804
  Receipt Date: 20040421
  Transmission Date: 20050211
  Serious: No
  Sender: FDA-Public Use
  Company Number: US-BRISTOL-MYERS SQUIBB COMPANY-12567087

PATIENT
  Age: 67 Year
  Sex: Female
  Weight: 91 kg

DRUGS (6)
  1. GLUCOVANCE [Suspect]
     Indication: DIABETES MELLITUS
     Dosage: DURATION OF THERAPY:  ^2-3 YEARS^
     Route: 048
  2. PRAVACHOL [Suspect]
     Indication: LIPIDS INCREASED
     Dosage: DURATION OF THERAPY:  ^2-3 YEARS^
  3. PLAVIX [Suspect]
     Indication: CEREBROVASCULAR ACCIDENT
     Route: 048
  4. SYNTHROID [Concomitant]
  5. PREMARIN [Concomitant]
  6. DARVOCET [Concomitant]

REACTIONS (2)
  - HYPOAESTHESIA [None]
  - MUSCULAR WEAKNESS [None]
